FAERS Safety Report 16379256 (Version 1)
Quarter: 2019Q2

REPORT INFORMATION
  Report Type: Spontaneous
  Country: FR (occurrence: FR)
  Receive Date: 20190531
  Receipt Date: 20190531
  Transmission Date: 20190711
  Serious: Yes (Hospitalization)
  Sender: FDA-Public Use
  Company Number: FR-MYLANLABS-2019M1050875

PATIENT
  Age: 73 Year
  Sex: Female
  Weight: 110 kg

DRUGS (4)
  1. CISPLATIN. [Suspect]
     Active Substance: CISPLATIN
     Indication: PRODUCT USED FOR UNKNOWN INDICATION
     Dosage: 1 UNK, QD(2000 OT, QD)
     Route: 065
     Dates: start: 20180905
  2. GEMCITABINE [Suspect]
     Active Substance: GEMCITABINE\GEMCITABINE HYDROCHLORIDE
     Indication: NEUTROPENIA
     Dosage: 1 UNK, QD(2000 OT, QD)
     Route: 065
     Dates: start: 20180905
  3. CISPLATIN. [Suspect]
     Active Substance: CISPLATIN
     Dosage: 1 UNK, QD(140 OT, QD)
     Route: 065
     Dates: start: 20180905
  4. ZARZIO [Suspect]
     Active Substance: FILGRASTIM
     Indication: NEUTROPENIA
     Dosage: 48 MEGA-INTERNATIONAL UNIT, QD
     Route: 065
     Dates: start: 20180930

REACTIONS (1)
  - Pain [Unknown]

NARRATIVE: CASE EVENT DATE: 20180930
